FAERS Safety Report 4510314-2 (Version None)
Quarter: 2004Q4

REPORT INFORMATION
  Report Type: 
  Country: None (occurrence: None)
  Receive Date: 20041122
  Receipt Date: 20041111
  Transmission Date: 20050328
  Serious: Yes (Death, Hospitalization)
  Sender: FDA-Public Use
  Company Number: US-SHR-03-001965

PATIENT
  Age: 75 Year
  Sex: Male
  Weight: 91.6 kg

DRUGS (3)
  1. FLUDARA [Suspect]
     Indication: CHRONIC LYMPHOCYTIC LEUKAEMIA
     Dosage: 25 MG/M2, 1 X/DAY X 5 DAYS, INTRAVENOUS
     Route: 042
     Dates: start: 20021209, end: 20021213
  2. PROCRIT (ERYTHROPOIETIN) [Suspect]
     Indication: ANAEMIA
     Dosage: 40,000 UNITS 1-2X/WEEK, SUBCUTANEOUS
     Route: 058
     Dates: start: 20020227, end: 20030120
  3. RITUXIMAB [Concomitant]

REACTIONS (6)
  - APLASIA PURE RED CELL [None]
  - CONDITION AGGRAVATED [None]
  - PEMPHIGOID [None]
  - SKIN DESQUAMATION [None]
  - THERAPEUTIC RESPONSE DECREASED [None]
  - WHITE BLOOD CELL COUNT INCREASED [None]
